FAERS Safety Report 25761934 (Version 11)
Quarter: 2025Q4

REPORT INFORMATION
  Report Type: Report from Study
  Country: EU (occurrence: EU)
  Receive Date: 20250904
  Receipt Date: 20251211
  Transmission Date: 20260118
  Serious: Yes (Hospitalization, Other)
  Sender: ABBVIE
  Company Number: EU-ABBVIE-6421507

PATIENT
  Age: 61 Year
  Sex: Male

DRUGS (14)
  1. FOSCARBIDOPA\FOSLEVODOPA [Suspect]
     Active Substance: FOSCARBIDOPA\FOSLEVODOPA
     Indication: Parkinson^s disease
     Dosage: CRN 0.15 ML/H - CR 0.20 ML/H - CRH 0.22 ML/H - ED 0.15 ML BLOCKING TIME 01:00 H
     Route: 058
     Dates: start: 20250814, end: 20250815
  2. FOSCARBIDOPA\FOSLEVODOPA [Suspect]
     Active Substance: FOSCARBIDOPA\FOSLEVODOPA
     Dosage: CRN 0.17 ML/H, CR 0.22 ML/H, CRH 0.23 ML/H, ED 0.15 ML BLOCKING TIME 01:00 H
     Route: 058
     Dates: start: 20250815, end: 202508
  3. FOSCARBIDOPA\FOSLEVODOPA [Suspect]
     Active Substance: FOSCARBIDOPA\FOSLEVODOPA
     Dosage: CRN 0.19 ML/H, CR 0.25 ML/H, CRH 0.27 ML/H, ED 0.15 ML
     Route: 058
     Dates: start: 202508, end: 202508
  4. FOSCARBIDOPA\FOSLEVODOPA [Suspect]
     Active Substance: FOSCARBIDOPA\FOSLEVODOPA
     Dosage: CR 0.26ML/H, CRN 0.19ML/H, CRH 0.29ML/H, ED 0.15ML?LAST ADMIN DATE: 2025
     Route: 058
     Dates: start: 202508
  5. FOSCARBIDOPA\FOSLEVODOPA [Suspect]
     Active Substance: FOSCARBIDOPA\FOSLEVODOPA
     Dosage: CR 0.25 ML/H, CRH 0.26 ML/, CRN 0.20 ML/H, ED 0.15 ML
     Route: 058
     Dates: start: 2025, end: 2025
  6. FOSCARBIDOPA\FOSLEVODOPA [Suspect]
     Active Substance: FOSCARBIDOPA\FOSLEVODOPA
     Dosage: CRN: 0.18 ML/H; CR: 0.24 ML/H; CRH: 0.27 ML/H; ED: 0.15 ML
     Route: 058
     Dates: start: 2025, end: 2025
  7. FOSCARBIDOPA\FOSLEVODOPA [Suspect]
     Active Substance: FOSCARBIDOPA\FOSLEVODOPA
     Dosage: CR 0.23 ML/H - CRH 0.27 ML/H - CRN 0.17 ML/H  ED 0,15 ML
     Route: 058
     Dates: start: 2025, end: 2025
  8. FOSCARBIDOPA\FOSLEVODOPA [Suspect]
     Active Substance: FOSCARBIDOPA\FOSLEVODOPA
     Dosage: DOSE: CRN 0.19 ML/H - CR 0.25 ML/H - CRH 0.27 ML/H - ED 0.15
     Route: 058
     Dates: start: 2025
  9. PANTOPRAZOLE [Concomitant]
     Active Substance: PANTOPRAZOLE
     Indication: Product used for unknown indication
  10. ELIQUIS [Concomitant]
     Active Substance: APIXABAN
     Indication: Product used for unknown indication
  11. TORSEMIDE [Concomitant]
     Active Substance: TORSEMIDE
     Indication: Product used for unknown indication
  12. POLYETHYLENE GLYCOLS [Concomitant]
     Active Substance: POLYETHYLENE GLYCOLS
     Indication: Product used for unknown indication
  13. BISOPROLOL [Concomitant]
     Active Substance: BISOPROLOL
     Indication: Product used for unknown indication
  14. BEZAFIBRATE [Concomitant]
     Active Substance: BEZAFIBRATE
     Indication: Product used for unknown indication

REACTIONS (13)
  - Craniofacial fracture [Not Recovered/Not Resolved]
  - On and off phenomenon [Recovering/Resolving]
  - Hallucination [Recovering/Resolving]
  - Binge eating [Not Recovered/Not Resolved]
  - Mobility decreased [Recovered/Resolved]
  - Eye movement disorder [Not Recovered/Not Resolved]
  - Fall [Not Recovered/Not Resolved]
  - Swelling of nose [Unknown]
  - Hypoaesthesia [Not Recovered/Not Resolved]
  - Fatigue [Recovering/Resolving]
  - Seizure [Not Recovered/Not Resolved]
  - Infusion site erythema [Recovering/Resolving]
  - Fatigue [Recovered/Resolved]

NARRATIVE: CASE EVENT DATE: 20250101
